FAERS Safety Report 24426125 (Version 1)
Quarter: 2024Q4

REPORT INFORMATION
  Report Type: Other
  Country: US (occurrence: US)
  Receive Date: 20241011
  Receipt Date: 20241011
  Transmission Date: 20250115
  Serious: Yes (Life-Threatening, Hospitalization)
  Sender: ALVOGEN
  Company Number: US-ALVOGEN-2024095628

PATIENT
  Age: 43 Year
  Sex: Female

DRUGS (5)
  1. DOXORUBICIN [Suspect]
     Active Substance: DOXORUBICIN
     Indication: Invasive ductal breast carcinoma
     Dosage: 4 CYCLES OF DOSE-DENSE DOXORUBICIN
  2. DEXAMETHASONE [Suspect]
     Active Substance: DEXAMETHASONE
     Indication: Antiemetic supportive care
     Dosage: RECEIVED DEXAMETHASONE FOLLOWING EACH CYCLE OF CHEMOTHERAPY
  3. CYCLOPHOSPHAMIDE [Suspect]
     Active Substance: CYCLOPHOSPHAMIDE
     Indication: Invasive ductal breast carcinoma
     Dosage: 4 CYCLES OF DOSE-DENSE CYCLOPHOSPHAMIDE
  4. PACLITAXEL [Suspect]
     Active Substance: PACLITAXEL
     Indication: Invasive ductal breast carcinoma
     Dosage: 1 DOSE (DOSE-DENSE REGIMEN)
  5. LEUPROLIDE [Concomitant]
     Active Substance: LEUPROLIDE
     Indication: Invasive ductal breast carcinoma

REACTIONS (2)
  - Pneumocystis jirovecii pneumonia [Unknown]
  - Immunosuppression [Unknown]
